FAERS Safety Report 23931187 (Version 2)
Quarter: 2025Q1

REPORT INFORMATION
  Report Type: Spontaneous
  Country: US (occurrence: US)
  Receive Date: 20240603
  Receipt Date: 20250107
  Transmission Date: 20250409
  Serious: No
  Sender: BIOGEN
  Company Number: US-BIOGEN-2024BI01267179

PATIENT
  Sex: Female

DRUGS (1)
  1. VUMERITY [Suspect]
     Active Substance: DIROXIMEL FUMARATE
     Indication: Multiple sclerosis
     Route: 050
     Dates: start: 20220112

REACTIONS (4)
  - Malaise [Unknown]
  - Feeling abnormal [Unknown]
  - Gait disturbance [Recovered/Resolved]
  - Hypoaesthesia [Recovered/Resolved]
